FAERS Safety Report 6639772-4 (Version None)
Quarter: 2010Q1

REPORT INFORMATION
  Report Type: 
  Country: None (occurrence: None)
  Receive Date: 20100318
  Receipt Date: 20100312
  Transmission Date: 20100710
  Serious: Yes (Hospitalization)
  Sender: FDA-Public Use
  Company Number: PHHY2010NO06613

PATIENT

DRUGS (4)
  1. BEGRIVAC [Suspect]
     Indication: IMMUNISATION
     Dates: start: 20091022, end: 20091022
  2. PNEUMOCOCCAL POLYSACCHARIDE VACCINE [Suspect]
     Indication: IMMUNISATION
     Dosage: UNK
     Dates: start: 20091113
  3. PANDEMRIX [Suspect]
     Dosage: UNK
     Dates: start: 20091022
  4. ATACAND HCT [Suspect]
     Dosage: 1 TABLET X 1

REACTIONS (22)
  - AREFLEXIA [None]
  - ASTHENIA [None]
  - BURNING SENSATION [None]
  - CSF CELL COUNT INCREASED [None]
  - CSF IMMUNOGLOBULIN INCREASED [None]
  - CSF PROTEIN INCREASED [None]
  - DECREASED ACTIVITY [None]
  - DECREASED VIBRATORY SENSE [None]
  - DEPRESSION [None]
  - ELECTRONYSTAGMOGRAM ABNORMAL [None]
  - FATIGUE [None]
  - GAIT DISTURBANCE [None]
  - GASTROENTERITIS [None]
  - GENERAL PHYSICAL HEALTH DETERIORATION [None]
  - GUILLAIN-BARRE SYNDROME [None]
  - HYPERSENSITIVITY [None]
  - INSOMNIA [None]
  - PAIN [None]
  - PARAESTHESIA [None]
  - PARESIS [None]
  - PRURITUS [None]
  - RASH [None]
